FAERS Safety Report 15694673 (Version 1)
Quarter: 2018Q4

REPORT INFORMATION
  Report Type: Spontaneous
  Country: PT (occurrence: PT)
  Receive Date: 20181206
  Receipt Date: 20181206
  Transmission Date: 20190205
  Serious: Yes (Life-Threatening, Hospitalization, Other)
  Sender: FDA-Public Use
  Company Number: PT-PFIZER INC-2018501053

PATIENT
  Age: 62 Year
  Sex: Male

DRUGS (1)
  1. METHOTREXATE SODIUM. [Suspect]
     Active Substance: METHOTREXATE SODIUM
     Indication: NON-HODGKIN^S LYMPHOMA
     Dosage: 4 CYCLES
     Route: 065

REACTIONS (8)
  - Toxicity to various agents [Unknown]
  - Febrile neutropenia [Unknown]
  - Pharyngeal inflammation [Unknown]
  - Purpura [Unknown]
  - Tongue oedema [Unknown]
  - Petechiae [Unknown]
  - Bone marrow failure [Unknown]
  - Laryngeal oedema [Unknown]
